FAERS Safety Report 12457776 (Version 2)
Quarter: 2016Q2

REPORT INFORMATION
  Report Type: Spontaneous
  Country: JP (occurrence: JP)
  Receive Date: 20160611
  Receipt Date: 20160620
  Transmission Date: 20160815
  Serious: Yes (Other)
  Sender: FDA-Public Use
  Company Number: JP-AMGEN-JPNSP2016074772

PATIENT
  Age: 8 Decade
  Sex: Male

DRUGS (5)
  1. NEU-UP [Suspect]
     Active Substance: UNSPECIFIED INGREDIENT
     Indication: PRODUCT USED FOR UNKNOWN INDICATION
     Dosage: UNK
     Route: 042
  2. FLUOROURACIL. [Concomitant]
     Active Substance: FLUOROURACIL
     Indication: OESOPHAGEAL CARCINOMA
     Dosage: UNK
     Route: 041
  3. G-LASTA [Suspect]
     Active Substance: PEGFILGRASTIM
     Indication: PRODUCT USED FOR UNKNOWN INDICATION
     Dosage: UNK
     Route: 058
  4. DOCETAXEL. [Concomitant]
     Active Substance: DOCETAXEL
     Indication: OESOPHAGEAL CARCINOMA
     Dosage: UNK
     Route: 041
  5. CISPLATIN. [Concomitant]
     Active Substance: CISPLATIN
     Indication: OESOPHAGEAL CARCINOMA
     Dosage: UNK
     Route: 041

REACTIONS (1)
  - Colony stimulating factor therapy [Unknown]
